FAERS Safety Report 15724844 (Version 10)
Quarter: 2019Q3

REPORT INFORMATION
  Report Type: Report from Study
  Country: DE (occurrence: DE)
  Receive Date: 20181214
  Receipt Date: 20190906
  Transmission Date: 20191004
  Serious: Yes (Hospitalization, Other)
  Sender: FDA-Public Use
  Company Number: DE-CELGENEUS-DEU-20181203033

PATIENT
  Age: 66 Year
  Sex: Female
  Weight: 73 kg

DRUGS (13)
  1. PEMBROLIZUMAB. [Suspect]
     Active Substance: PEMBROLIZUMAB
     Indication: BREAST CANCER
     Dosage: 200 MILLIGRAM
     Route: 041
     Dates: start: 20180614, end: 20181119
  2. ABRAXANE [Suspect]
     Active Substance: PACLITAXEL
     Dosage: 125 MILLIGRAM/SQ. METER
     Route: 041
     Dates: end: 20181129
  3. L-THYROXINE [Concomitant]
     Active Substance: LEVOTHYROXINE
     Indication: HYPOTHYROIDISM
     Dosage: 125 MILLIGRAM
     Route: 048
     Dates: start: 20180917
  4. CYCLOPHOSPHAMIDE. [Suspect]
     Active Substance: CYCLOPHOSPHAMIDE
     Indication: BREAST CANCER
     Dosage: 600 MILLIGRAM/SQ. METER
     Route: 041
     Dates: start: 20180913, end: 20181119
  5. L-THYROXINE [Concomitant]
     Active Substance: LEVOTHYROXINE
     Dosage: 100 MICROGRAM
     Route: 048
     Dates: start: 20180917
  6. APIXABAN [Concomitant]
     Active Substance: APIXABAN
     Indication: ATRIAL FIBRILLATION
     Dosage: 5000 MILLIGRAM
     Route: 048
     Dates: start: 20180920
  7. EPIRUBICIN [Suspect]
     Active Substance: EPIRUBICIN
     Indication: BREAST CANCER
     Dosage: 90 MILLIGRAM/SQ. METER
     Route: 041
     Dates: start: 20180913, end: 20181119
  8. BISOPROLOL [Concomitant]
     Active Substance: BISOPROLOL
     Indication: HYPERTENSION
     Dosage: 5 MILLIGRAM
     Route: 048
     Dates: start: 2013
  9. ABRAXANE [Suspect]
     Active Substance: PACLITAXEL
     Indication: BREAST CANCER
     Dosage: 125 MILLIGRAM/SQ. METER
     Route: 041
     Dates: start: 20180614, end: 20180906
  10. TIMONIL [Concomitant]
     Active Substance: CARBAMAZEPINE
     Dosage: 120 MILLIGRAM
     Route: 048
  11. ATORVASTATIN [Concomitant]
     Active Substance: ATORVASTATIN
     Indication: HYPERCHOLESTEROLAEMIA
     Dosage: 20 MILLIGRAM
     Route: 048
  12. TIMONIL [Concomitant]
     Active Substance: CARBAMAZEPINE
     Indication: EPILEPSY
     Dosage: 1200 MILLIGRAM
     Route: 048
     Dates: start: 1988
  13. ATORVASTATIN [Concomitant]
     Active Substance: ATORVASTATIN
     Indication: DYSLIPIDAEMIA

REACTIONS (2)
  - Gamma-glutamyltransferase increased [Not Recovered/Not Resolved]
  - Optic ischaemic neuropathy [Recovered/Resolved]

NARRATIVE: CASE EVENT DATE: 20181208
